FAERS Safety Report 25212395 (Version 1)
Quarter: 2025Q2

REPORT INFORMATION
  Report Type: Spontaneous
  Country: EG (occurrence: EG)
  Receive Date: 20250418
  Receipt Date: 20250418
  Transmission Date: 20250716
  Serious: Yes (Other)
  Sender: HIKMA
  Company Number: EG-HIKMA PHARMACEUTICALS USA INC.-EG-H14001-25-03371

PATIENT
  Age: 55 Year
  Sex: Female
  Weight: 48 kg

DRUGS (5)
  1. ERBITUX [Suspect]
     Active Substance: CETUXIMAB
     Indication: Colon cancer
     Dosage: 560 MILLIGRAM, QOW
     Route: 042
     Dates: start: 20250126
  2. LEUCOVORIN CALCIUM [Suspect]
     Active Substance: LEUCOVORIN CALCIUM
     Indication: Colon cancer
     Dosage: 294 MILLIGRAM, QOW
     Route: 042
     Dates: start: 20250126
  3. OXALIPLATIN [Suspect]
     Active Substance: OXALIPLATIN
     Indication: Colon cancer
     Dosage: 124.9 MILLIGRAM, QOW
     Route: 042
     Dates: start: 20250126
  4. FLUOROURACIL [Suspect]
     Active Substance: FLUOROURACIL
     Indication: Colon cancer
     Dosage: 588 MILLIGRAM, QOW
     Route: 042
     Dates: start: 20250126
  5. FLUOROURACIL [Suspect]
     Active Substance: FLUOROURACIL
     Dosage: 882 MILLIGRAM, QOW
     Route: 042
     Dates: start: 20250126

REACTIONS (3)
  - Neutropenia [Unknown]
  - Leukopenia [Unknown]
  - Platelet count decreased [Unknown]

NARRATIVE: CASE EVENT DATE: 20250213
